FAERS Safety Report 11590695 (Version 1)
Quarter: 2015Q4

REPORT INFORMATION
  Report Type: Spontaneous
  Country: IE (occurrence: IE)
  Receive Date: 20151002
  Receipt Date: 20151002
  Transmission Date: 20160304
  Serious: Yes (Other)
  Sender: FDA-Public Use
  Company Number: IE-PFIZER INC-2015323209

PATIENT
  Age: 52 Year
  Sex: Male

DRUGS (1)
  1. INLYTA [Suspect]
     Active Substance: AXITINIB
     Indication: METASTATIC RENAL CELL CARCINOMA
     Dosage: 5 MG, UNK

REACTIONS (1)
  - Lower respiratory tract infection [Unknown]
